FAERS Safety Report 14310616 (Version 19)
Quarter: 2024Q1

REPORT INFORMATION
  Report Type: Spontaneous
  Country: PL (occurrence: PL)
  Receive Date: 20171220
  Receipt Date: 20240102
  Transmission Date: 20240410
  Serious: Yes (Hospitalization, Other)
  Sender: FDA-Public Use
  Company Number: None

PATIENT
  Age: 81 Year
  Sex: Female

DRUGS (28)
  1. CIPROFLOXACIN [Suspect]
     Active Substance: CIPROFLOXACIN
     Indication: Product used for unknown indication
     Dosage: 200 MILLIGRAM, BID
     Route: 042
  2. CIPROFLOXACIN [Suspect]
     Active Substance: CIPROFLOXACIN
     Dosage: 800 MILLIGRAM, QD
     Route: 042
  3. CIPROFLOXACIN [Suspect]
     Active Substance: CIPROFLOXACIN
     Dosage: 400 MILLIGRAM, BID
     Route: 042
  4. CIPROFLOXACIN [Suspect]
     Active Substance: CIPROFLOXACIN
     Dosage: 400 MILLIGRAM, QD
     Route: 042
  5. CIPROFLOXACIN [Suspect]
     Active Substance: CIPROFLOXACIN
     Dosage: 200 MILLIGRAM, QD
     Route: 042
  6. HEPARIN [Suspect]
     Active Substance: HEPARIN SODIUM
     Indication: Product used for unknown indication
     Dosage: 0.4 MILLILITER, QD
     Route: 065
  7. HEPARIN [Suspect]
     Active Substance: HEPARIN SODIUM
     Dosage: 0.4 DOSAGE FORM
     Route: 065
  8. HEPARIN [Suspect]
     Active Substance: HEPARIN SODIUM
     Dosage: 0.4 MILLILITER, QD
     Route: 065
  9. AMIODARONE [Suspect]
     Active Substance: AMIODARONE
     Indication: Cardiac failure chronic
     Dosage: 200 MILLIGRAM, QD (5 DAY A WEEK)
     Route: 065
     Dates: start: 2013
  10. AMIODARONE [Suspect]
     Active Substance: AMIODARONE
     Indication: Atrial fibrillation
     Dosage: 200 MILLIGRAM, QD (5 DAYS PER WEEK)
     Route: 065
     Dates: start: 201303, end: 2016
  11. AMIODARONE [Suspect]
     Active Substance: AMIODARONE
     Dosage: 200 MILLIGRAM, QD
     Route: 065
     Dates: start: 20130301, end: 20160101
  12. LEVOTHYROXINE [Suspect]
     Active Substance: LEVOTHYROXINE
     Indication: Product used for unknown indication
     Dosage: 25 MICROGRAM, QD
     Route: 065
  13. LEVOTHYROXINE [Suspect]
     Active Substance: LEVOTHYROXINE
     Dosage: 0.03 MILLIGRAM, QD
     Route: 065
  14. PREDNISONE [Suspect]
     Active Substance: PREDNISONE
     Indication: Product used for unknown indication
     Dosage: 20 MILLIGRAM, QD
     Route: 065
  15. PREDNISONE [Suspect]
     Active Substance: PREDNISONE
     Dosage: 30 MILLIGRAM, QD
     Route: 065
  16. PREDNISONE [Suspect]
     Active Substance: PREDNISONE
     Dosage: 10 MILLIGRAM, QD
     Route: 065
  17. CARVEDILOL [Suspect]
     Active Substance: CARVEDILOL
     Indication: Product used for unknown indication
     Dosage: 12.5 MILLIGRAM, QD
     Route: 065
  18. CARVEDILOL [Suspect]
     Active Substance: CARVEDILOL
     Dosage: 18.75 MILLIGRAM, QD
     Route: 065
  19. FUROSEMIDE [Suspect]
     Active Substance: FUROSEMIDE
     Indication: Product used for unknown indication
     Dosage: 40 MILLIGRAM, QD
     Route: 065
  20. PANTOPRAZOLE [Suspect]
     Active Substance: PANTOPRAZOLE
     Indication: Product used for unknown indication
     Dosage: 20 MILLIGRAM, QD
     Route: 065
  21. RIVAROXABAN [Suspect]
     Active Substance: RIVAROXABAN
     Indication: Product used for unknown indication
     Dosage: 15 MILLIGRAM, QD
     Route: 065
  22. PREDNISONE [Suspect]
     Active Substance: PREDNISONE
     Indication: Product used for unknown indication
     Dosage: 30 MILLIGRAM, QD
     Route: 065
  23. PREDNISONE [Suspect]
     Active Substance: PREDNISONE
     Dosage: 20 MILLIGRAM, QD
     Route: 065
  24. PREDNISONE [Suspect]
     Active Substance: PREDNISONE
     Dosage: 10 MILLIGRAM, QD
     Route: 065
  25. NADROPARIN CALCIUM [Suspect]
     Active Substance: NADROPARIN CALCIUM
     Indication: Product used for unknown indication
     Dosage: 0.4 MILLILITER, QD
     Route: 065
  26. VITAMIN D NOS [Suspect]
     Active Substance: VITAMIN D NOS
     Indication: Product used for unknown indication
     Dosage: UNK
     Route: 065
  27. CALCIUM [Concomitant]
     Active Substance: CALCIUM
     Indication: Product used for unknown indication
     Dosage: UNK
     Route: 065
  28. VITAMIN D [Concomitant]
     Active Substance: VITAMIN D NOS
     Indication: Product used for unknown indication
     Dosage: UNK
     Route: 065

REACTIONS (19)
  - Diarrhoea [Recovering/Resolving]
  - Fatigue [Recovered/Resolved]
  - Palpitations [Recovered/Resolved]
  - Dyspnoea [Recovered/Resolved]
  - Cough [Recovered/Resolved]
  - Ventricular arrhythmia [Unknown]
  - Atrial fibrillation [Unknown]
  - Pulmonary toxicity [Recovered/Resolved]
  - Oliguria [Recovering/Resolving]
  - Pneumonia [Recovered/Resolved]
  - Asthenia [Unknown]
  - Exercise tolerance decreased [Recovered/Resolved]
  - Oedema peripheral [Unknown]
  - Interstitial lung disease [Recovered/Resolved]
  - Renal impairment [Unknown]
  - Subdural haematoma [Unknown]
  - Lung consolidation [Unknown]
  - Aortic aneurysm [Unknown]
  - Cholelithiasis [Unknown]

NARRATIVE: CASE EVENT DATE: 20160101
